FAERS Safety Report 20010160 (Version 1)
Quarter: 2021Q4

REPORT INFORMATION
  Report Type: Spontaneous
  Country: ZA (occurrence: ZA)
  Receive Date: 20211029
  Receipt Date: 20211029
  Transmission Date: 20220303
  Serious: Yes (Hospitalization)
  Sender: FDA-Public Use
  Company Number: ZA-ORGANON-O2110ZAF002079

PATIENT
  Sex: Female

DRUGS (1)
  1. FOSAVANCE [Suspect]
     Active Substance: ALENDRONATE SODIUM\CHOLECALCIFEROL
     Dosage: UNK
     Route: 048

REACTIONS (7)
  - Ulcer [Unknown]
  - Dyspnoea [Unknown]
  - Chest discomfort [Unknown]
  - Abdominal pain upper [Unknown]
  - Headache [Unknown]
  - Arthralgia [Unknown]
  - Myalgia [Unknown]

NARRATIVE: CASE EVENT DATE: 20211018
